FAERS Safety Report 15797913 (Version 1)
Quarter: 2019Q1

REPORT INFORMATION
  Report Type: Spontaneous
  Country: CN (occurrence: CN)
  Receive Date: 20190108
  Receipt Date: 20190108
  Transmission Date: 20190417
  Serious: Yes (Other)
  Sender: FDA-Public Use
  Company Number: CN-ASTRAZENECA-2019SE01808

PATIENT
  Age: 18628 Day
  Sex: Female
  Weight: 56.7 kg

DRUGS (19)
  1. TRADITIONAL CHINESE MEDICINE NOS [Suspect]
     Active Substance: HERBALS
     Indication: CHRONIC GASTRITIS
     Route: 048
     Dates: start: 20180817, end: 20181102
  2. TRADITIONAL CHINESE MEDICINE NOS [Suspect]
     Active Substance: HERBALS
     Indication: CHRONIC GASTRITIS
     Route: 048
     Dates: start: 20180817, end: 20181102
  3. HERBAL NOS [Suspect]
     Active Substance: HERBALS
     Indication: CHRONIC GASTRITIS
     Route: 048
     Dates: start: 20180817, end: 20181102
  4. DANDELION [Suspect]
     Active Substance: TARAXACUM OFFICINALE POLLEN
     Indication: CHRONIC GASTRITIS
     Route: 048
     Dates: start: 20180817, end: 20181102
  5. CUTTLEBONE [Suspect]
     Active Substance: HERBALS
     Indication: CHRONIC GASTRITIS
     Route: 048
     Dates: start: 20180817, end: 20181102
  6. TRADITIONAL CHINESE MEDICINE NOS [Suspect]
     Active Substance: HERBALS
     Indication: CHRONIC GASTRITIS
     Route: 048
     Dates: start: 20180817, end: 20181102
  7. HERBAL NOS [Suspect]
     Active Substance: HERBALS
     Indication: CHRONIC GASTRITIS
     Route: 048
     Dates: start: 20180817, end: 20181102
  8. TRADITIONAL CHINESE MEDICINE NOS [Suspect]
     Active Substance: HERBALS
     Indication: CHRONIC GASTRITIS
     Route: 048
     Dates: start: 20180817, end: 20181102
  9. ESOMEPRAZOLE MAGNESIUM. [Suspect]
     Active Substance: ESOMEPRAZOLE MAGNESIUM
     Indication: CHRONIC GASTRITIS
     Route: 048
     Dates: start: 20180817, end: 20181106
  10. HERBAL NOS [Suspect]
     Active Substance: HERBALS
     Indication: CHRONIC GASTRITIS
     Route: 048
     Dates: start: 20180817, end: 20181102
  11. HERBAL NOS [Suspect]
     Active Substance: HERBALS
     Indication: CHRONIC GASTRITIS
     Route: 048
     Dates: start: 20180817, end: 20181102
  12. HERBAL NOS [Suspect]
     Active Substance: HERBALS
     Indication: CHRONIC GASTRITIS
     Route: 048
     Dates: start: 20180817, end: 20181102
  13. MUSK ANALGESIC CREAM [Concomitant]
     Indication: SOFT TISSUE INJURY
     Route: 061
     Dates: start: 20181102, end: 20181106
  14. HERBAL NOS [Suspect]
     Active Substance: HERBALS
     Indication: CHRONIC GASTRITIS
     Route: 048
     Dates: start: 20180817, end: 20181102
  15. HERBAL NOS [Suspect]
     Active Substance: HERBALS
     Indication: CHRONIC GASTRITIS
     Route: 048
     Dates: start: 20180817, end: 20181102
  16. TRADITIONAL CHINESE MEDICINE NOS [Suspect]
     Active Substance: HERBALS
     Indication: CHRONIC GASTRITIS
     Route: 048
     Dates: start: 20180817, end: 20181102
  17. REBAMIPIDE [Suspect]
     Active Substance: REBAMIPIDE
     Indication: CHRONIC GASTRITIS
     Route: 048
     Dates: start: 20180817, end: 20181019
  18. HERBAL GASTROINTESTINAL PREPARATION NOS [Suspect]
     Active Substance: HERBALS
     Indication: CHRONIC GASTRITIS
     Route: 048
     Dates: start: 20180817, end: 20181102
  19. HERBAL NOS [Suspect]
     Active Substance: HERBALS
     Indication: CHRONIC GASTRITIS
     Route: 048
     Dates: start: 20180817, end: 20181102

REACTIONS (3)
  - Asthenia [Not Recovered/Not Resolved]
  - Hepatocellular injury [Not Recovered/Not Resolved]
  - Chest discomfort [Not Recovered/Not Resolved]

NARRATIVE: CASE EVENT DATE: 20181106
